FAERS Safety Report 10740821 (Version 1)
Quarter: 2015Q1

REPORT INFORMATION
  Report Type: Spontaneous
  Country: US (occurrence: None)
  Receive Date: 20150123
  Receipt Date: 20150123
  Transmission Date: 20150721
  Serious: Yes (Other)
  Sender: FDA-Public Use
  Company Number: 2706600

PATIENT
  Age: 66 Year
  Sex: Male
  Weight: 74 kg

DRUGS (5)
  1. ABRAXANE [Suspect]
     Active Substance: PACLITAXEL
     Indication: ADENOCARCINOMA PANCREAS
     Dosage: 230 MG MILLIGRAMS (CYCLICAL) INTRAVENOUS (NOT OTHERWISE SPECIFEID)
     Route: 042
     Dates: start: 20141117, end: 20150105
  2. CARDIOASPIRIN [Concomitant]
     Active Substance: ASPIRIN
  3. GEMCITABINE HYDROCHLORIDE. [Suspect]
     Active Substance: GEMCITABINE HYDROCHLORIDE
     Indication: ADENOCARCINOMA PANCREAS
     Dosage: 1850 MG MILLIGRAMS (CYCLICAL) INTRAVENOUS (NOT OTHERWISE SPECIFIED)?
     Route: 042
     Dates: start: 20141117, end: 20150105
  4. CRESTOR [Concomitant]
     Active Substance: ROSUVASTATIN CALCIUM
  5. KARVEA [Concomitant]
     Active Substance: IRBESARTAN

REACTIONS (1)
  - Erythema [None]

NARRATIVE: CASE EVENT DATE: 20141118
